FAERS Safety Report 7708315 (Version 11)
Quarter: 2013Q1

REPORT INFORMATION
  Report Type: Spontaneous
  Country: US (occurrence: US)
  Receive Date: 20101214
  Receipt Date: 20130304
  Transmission Date: 20140127
  Serious: Yes (Hospitalization, Disabling, Other)
  Sender: FDA-Public Use
  Company Number: US-MERCK-1012USA01905

PATIENT
  Sex: Female
  Weight: 60.33 kg

DRUGS (5)
  1. FOSAMAX [Suspect]
     Indication: OSTEOPOROSIS
     Dosage: 70 MG, QW
     Route: 048
     Dates: start: 2001, end: 200811
  2. FOSAMAX [Suspect]
     Indication: OSTEOPENIA
  3. CALCIUM (UNSPECIFIED) [Concomitant]
     Indication: OSTEOPOROSIS
  4. MK-9278 [Concomitant]
  5. FOSAMAX [Suspect]
     Route: 048

REACTIONS (16)
  - Femur fracture [Unknown]
  - Vitamin D deficiency [Unknown]
  - Hypercholesterolaemia [Unknown]
  - Tooth impacted [Unknown]
  - Bartholin^s cyst [Unknown]
  - Fall [Unknown]
  - Rib fracture [Recovering/Resolving]
  - Hand fracture [Recovering/Resolving]
  - Foot fracture [Recovering/Resolving]
  - Deep vein thrombosis postoperative [Unknown]
  - Bursitis [Unknown]
  - Tooth impacted [Unknown]
  - Cardiac disorder [Unknown]
  - Hyperlipidaemia [Unknown]
  - Gastrointestinal disorder [Unknown]
  - Hyperparathyroidism [Unknown]
